FAERS Safety Report 24190624 (Version 3)
Quarter: 2024Q3

REPORT INFORMATION
  Report Type: Spontaneous
  Country: US (occurrence: US)
  Receive Date: 20240808
  Receipt Date: 20240924
  Transmission Date: 20241017
  Serious: Yes (Other)
  Sender: GLAXOSMITHKLINE
  Company Number: US-GSK-US2024096248

PATIENT

DRUGS (1)
  1. BENLYSTA [Suspect]
     Active Substance: BELIMUMAB
     Indication: Product used for unknown indication
     Dosage: UNK

REACTIONS (7)
  - Pneumonia [Recovered/Resolved]
  - Ear pain [Recovered/Resolved]
  - Herpes zoster [Not Recovered/Not Resolved]
  - Bronchitis [Recovered/Resolved]
  - Candida infection [Recovered/Resolved]
  - Asthma [Unknown]
  - Product dose omission issue [Unknown]
